FAERS Safety Report 15425976 (Version 1)
Quarter: 2018Q3

REPORT INFORMATION
  Report Type: Spontaneous
  Country: DE (occurrence: DE)
  Receive Date: 20180925
  Receipt Date: 20180925
  Transmission Date: 20181010
  Serious: Yes (Other)
  Sender: FDA-Public Use
  Company Number: PHHY2018DE104638

PATIENT
  Age: 33 Year
  Sex: Female
  Weight: 70 kg

DRUGS (16)
  1. CEFUROXIM [Concomitant]
     Active Substance: CEFUROXIME
     Indication: INFECTION
     Dosage: 1000 MG, QD
     Route: 048
     Dates: start: 20180405, end: 20180415
  2. FOLSAEURE [Concomitant]
     Active Substance: FOLIC ACID
     Indication: PROPHYLAXIS OF NEURAL TUBE DEFECT
     Dosage: 0.8 MG, QD START OF PROPHYLAXIS PROBABLY EARLIER
     Route: 048
     Dates: start: 20180401, end: 20180428
  3. METRONIDAZOLE. [Concomitant]
     Active Substance: METRONIDAZOLE
     Indication: INFECTION
     Dosage: 1500 MG, QD
     Route: 042
     Dates: start: 20180415, end: 20180418
  4. NATRIUMPICOSULFAT [Concomitant]
     Indication: CONSTIPATION
     Dosage: UNK
     Route: 048
  5. MISOPROSTOL. [Concomitant]
     Active Substance: MISOPROSTOL
     Indication: ABORTION INDUCED
     Route: 048
  6. MEROPENEM. [Concomitant]
     Active Substance: MEROPENEM
     Indication: INFECTION
     Route: 042
  7. VOMEX A [Concomitant]
     Active Substance: DIMENHYDRINATE
     Indication: NAUSEA
     Dosage: 150 MG, QD
     Route: 048
  8. FOLINSAEURE [Concomitant]
     Active Substance: LEUCOVORIN CALCIUM
     Indication: DRUG TOXICITY PROPHYLAXIS
     Route: 041
  9. MACROGOL [Concomitant]
     Active Substance: POLYETHYLENE GLYCOLS
     Indication: CONSTIPATION
     Dosage: UNK
     Route: 048
  10. OXALIPLATIN. [Suspect]
     Active Substance: OXALIPLATIN
     Indication: ADENOCARCINOMA OF COLON
     Dosage: 85 MG/M2, Q3W
     Route: 041
     Dates: start: 20180403, end: 20180426
  11. 5?FLUOROURACIL [Suspect]
     Active Substance: FLUOROURACIL
     Indication: ADENOCARCINOMA OF COLON
     Dosage: 2800 OT, UNK (MG/M /INSGESAMT ]/ FOLFOX)
     Route: 041
  12. VANCOMYCIN [Concomitant]
     Active Substance: VANCOMYCIN
     Indication: INFECTION
     Route: 042
  13. GRIPPEIMPFSTOFF [Concomitant]
     Active Substance: INFLUENZA VIRUS VACCINE
     Indication: IMMUNISATION
     Route: 030
  14. PIPERACILLIN [Concomitant]
     Active Substance: PIPERACILLIN
     Indication: INFECTION
     Route: 042
  15. CEFTRIAXON [Concomitant]
     Active Substance: CEFTRIAXONE
     Indication: INFECTION
     Dosage: 4000 MG, QD
     Route: 042
     Dates: start: 20180415, end: 20180418
  16. OXYCODONE [Concomitant]
     Active Substance: OXYCODONE
     Indication: CANCER PAIN
     Dosage: 15 MG, QD
     Route: 048
     Dates: start: 20180428, end: 20180428

REACTIONS (1)
  - Abortion spontaneous [Recovered/Resolved]
